FAERS Safety Report 7803576-7 (Version None)
Quarter: 2011Q4

REPORT INFORMATION
  Report Type: 
  Country: None (occurrence: None)
  Receive Date: 20111009
  Receipt Date: 20110926
  Transmission Date: 20120403
  Serious: Yes (Hospitalization)
  Sender: FDA-Public Use
  Company Number: US-ELI_LILLY_AND_COMPANY-US201008008705

PATIENT
  Sex: Female

DRUGS (6)
  1. FORTEO [Suspect]
     Dosage: 20 UG, DAILY (1/D)
  2. FORTEO [Suspect]
     Dosage: 20 UG, DAILY (1/D)
  3. FORTEO [Suspect]
     Indication: OSTEOPOROSIS
     Dosage: 20 UG, DAILY (1/D)
     Dates: start: 20100809
  4. PREDNISONE [Concomitant]
  5. FORTEO [Suspect]
     Dosage: 20 UG, UNK
  6. ASACOL [Concomitant]

REACTIONS (9)
  - DIZZINESS [None]
  - SMALL INTESTINE ULCER [None]
  - INJECTION SITE ERYTHEMA [None]
  - INJECTION SITE HAEMORRHAGE [None]
  - INJECTION SITE HAEMATOMA [None]
  - ASTHENIA [None]
  - VISION BLURRED [None]
  - COLITIS [None]
  - DIARRHOEA [None]
